FAERS Safety Report 10090229 (Version 2)
Quarter: 2014Q2

REPORT INFORMATION
  Report Type: Spontaneous
  Country: US (occurrence: US)
  Receive Date: 20140421
  Receipt Date: 20140612
  Transmission Date: 20141212
  Serious: Yes (Life-Threatening)
  Sender: FDA-Public Use
  Company Number: US-JNJFOC-20140413822

PATIENT
  Age: 73 Year
  Sex: Female
  Weight: 76.7 kg

DRUGS (7)
  1. XARELTO [Suspect]
     Indication: ATRIAL FLUTTER
     Route: 048
  2. XARELTO [Suspect]
     Indication: CEREBROVASCULAR ACCIDENT PROPHYLAXIS
     Route: 048
  3. XARELTO [Suspect]
     Indication: ATRIAL FIBRILLATION
     Route: 048
  4. RYTHMOL [Concomitant]
     Route: 048
  5. CRESTOR [Concomitant]
     Route: 048
  6. LOPRESSOR [Concomitant]
     Route: 048
  7. NEURONTIN [Concomitant]
     Route: 048

REACTIONS (3)
  - Muscular weakness [Unknown]
  - Aphasia [Unknown]
  - VIIth nerve paralysis [Unknown]
